FAERS Safety Report 10085722 (Version 1)
Quarter: 2014Q2

REPORT INFORMATION
  Report Type: Spontaneous
  Country: US (occurrence: None)
  Receive Date: 20140416
  Receipt Date: 20140416
  Transmission Date: 20141212
  Serious: Yes (Other)
  Sender: FDA-Public Use
  Company Number: HA14-122-AE

PATIENT
  Age: 60 Year
  Sex: Female
  Weight: 83.46 kg

DRUGS (10)
  1. SMZ/TMP [Suspect]
     Indication: URINARY TRACT INFECTION
     Route: 048
     Dates: start: 20140327, end: 20140401
  2. BENADRYL [Concomitant]
  3. VALIUM [Concomitant]
  4. SYNTHROID [Concomitant]
  5. FENTANYL [Concomitant]
  6. LOPRESSOR [Concomitant]
  7. MIDODRINE [Concomitant]
  8. OXYIR [Concomitant]
  9. BACLOFEN [Concomitant]
  10. AMOXICILLIN [Concomitant]

REACTIONS (8)
  - Drug interaction [None]
  - Cheilitis [None]
  - Lip swelling [None]
  - Lip exfoliation [None]
  - Lip blister [None]
  - Rash [None]
  - Hypoaesthesia [None]
  - Skin ulcer haemorrhage [None]
